FAERS Safety Report 21423878 (Version 1)
Quarter: 2022Q4

REPORT INFORMATION
  Report Type: Spontaneous
  Country: NL (occurrence: NL)
  Receive Date: 20221007
  Receipt Date: 20221007
  Transmission Date: 20230113
  Serious: Yes (Death, Other)
  Sender: FDA-Public Use
  Company Number: None

PATIENT
  Age: 81 Year
  Sex: Male

DRUGS (4)
  1. PREDNISONE [Suspect]
     Active Substance: PREDNISONE
     Indication: Dermatitis bullous
     Dosage: PREDNISON TABLET 20MG - NON-CURRENT DRUG / BRAND NAME NOT SPECIFIED, THERAPY END DATE : ASKU
     Dates: start: 20211108
  2. SERETIDE [Concomitant]
     Active Substance: FLUTICASONE PROPIONATE\SALMETEROL XINAFOATE
     Indication: Product used for unknown indication
     Dosage: SALMETEROL/FLUTICASON AEROSOL 25/250UG/DO / SERETIDE AEROSOL 25/250MCG/DO CFKVR SPBS 120DO+INH
  3. ALBUTEROL [Concomitant]
     Active Substance: ALBUTEROL
     Indication: Product used for unknown indication
     Dosage: THERAPY START DATE : NASK, THERAPY END DATE : ASKU, SALBUTAMOL AEROSOL 100UG/DO / BRAND NAME NOT SPE
  4. ENALAPRIL [Concomitant]
     Active Substance: ENALAPRIL
     Indication: Product used for unknown indication
     Dosage: THERAPY START DATE : NASK, THERAPY END DATE : ASKU, ENALAPRIL TABLET  5MG / BRAND NAME NOT SPECIFIED

REACTIONS (5)
  - Pulmonary infarction [Fatal]
  - Cardiac failure [Not Recovered/Not Resolved]
  - Cardiac amyloidosis [Not Recovered/Not Resolved]
  - Dermatitis bullous [Not Recovered/Not Resolved]
  - Weight decreased [Not Recovered/Not Resolved]

NARRATIVE: CASE EVENT DATE: 20210603
